FAERS Safety Report 8797467 (Version 1)
Quarter: 2012Q4

REPORT INFORMATION
  Report Type: 
  Country: US (occurrence: US)
  Receive Date: 20120920
  Receipt Date: 20120920
  Transmission Date: 20130627
  Serious: No
  Sender: FDA-Public Use
  Company Number: US-PFIZER INC-2012230979

PATIENT
  Age: 73 Year
  Sex: Male

DRUGS (2)
  1. PROPANOLOL HCL [Suspect]
     Dosage: 60 mg (one capsule), in the morning
     Route: 048
  2. LOSARTAN [Concomitant]
     Indication: BLOOD PRESSURE ABNORMAL
     Dosage: UNK

REACTIONS (2)
  - Hypertension [Unknown]
  - Hypotension [Unknown]
